FAERS Safety Report 23511343 (Version 4)
Quarter: 2024Q2

REPORT INFORMATION
  Report Type: Spontaneous
  Country: TR (occurrence: TR)
  Receive Date: 20240212
  Receipt Date: 20240510
  Transmission Date: 20240716
  Serious: Yes (Hospitalization)
  Sender: FDA-Public Use
  Company Number: TR-NOVOPROD-1172359

PATIENT
  Age: 486 Month
  Sex: Female
  Weight: 59 kg

DRUGS (3)
  1. LUSTRAL [Concomitant]
     Active Substance: SERTRALINE HYDROCHLORIDE
     Indication: Anxiety
     Dosage: 50 MG, QD
     Route: 048
  2. OZEMPIC [Suspect]
     Active Substance: SEMAGLUTIDE
     Dosage: 80 IU, QW
  3. OZEMPIC [Suspect]
     Active Substance: SEMAGLUTIDE
     Indication: Weight control
     Dosage: UNK(USED FOR 3 MONTHS AND DID NOT EXPERIENCE ANY SIDE EFFECTS)

REACTIONS (5)
  - Blood potassium decreased [Recovered/Resolved]
  - Shock hypoglycaemic [Recovered/Resolved]
  - Nausea [Unknown]
  - Off label use [Unknown]
  - Drug diversion [Unknown]

NARRATIVE: CASE EVENT DATE: 20240129
